FAERS Safety Report 16716254 (Version 1)
Quarter: 2020Q3

REPORT INFORMATION
  Report Type: Spontaneous
  Country: US (occurrence: US)
  Receive Date: 20190818
  Receipt Date: 20190818
  Transmission Date: 20201105
  Serious: Yes (Death)
  Sender: FDA-Public Use
  Company Number: None

PATIENT
  Age: 84 Year
  Sex: Male
  Weight: 84 kg

DRUGS (1)
  1. TAGRAXOFUSP. [Suspect]
     Active Substance: TAGRAXOFUSP
     Indication: BLASTIC PLASMACYTOID DENDRITIC CELL NEOPLASIA
     Route: 042
     Dates: start: 20190605, end: 20190607

REACTIONS (20)
  - Sepsis [None]
  - Bacteraemia [None]
  - Pneumonia [None]
  - Hepatic failure [None]
  - Lung infiltration [None]
  - Renal failure [None]
  - Dyspnoea [None]
  - Pyrexia [None]
  - Enterococcus test positive [None]
  - Capillary leak syndrome [None]
  - Tachycardia [None]
  - Atrial fibrillation [None]
  - Hypotension [None]
  - Clostridium test positive [None]
  - Hypoxia [None]
  - Pseudomonas test positive [None]
  - Oedema peripheral [None]
  - Aspartate aminotransferase increased [None]
  - Therapy interrupted [None]
  - Hypoalbuminaemia [None]

NARRATIVE: CASE EVENT DATE: 20190613
